FAERS Safety Report 9421255 (Version 5)
Quarter: 2013Q3

REPORT INFORMATION
  Report Type: Spontaneous
  Country: GB (occurrence: None)
  Receive Date: 20130724
  Receipt Date: 20130815
  Transmission Date: 20140515
  Serious: Yes (Other)
  Sender: FDA-Public Use
  Company Number: AUR-APL-2013-06067

PATIENT
  Age: 71 Year
  Sex: Male

DRUGS (4)
  1. RAMIPRIL [Suspect]
     Indication: PRODUCT USED FOR UNKNOWN INDICATION
     Dosage: (10 MG,1D)
  2. LERCANIDIPINE [Suspect]
     Indication: PRODUCT USED FOR UNKNOWN INDICATION
     Dosage: 20MG 1 D
  3. COMBODART [Suspect]
     Indication: BENIGN PROSTATIC HYPERPLASIA
     Dates: start: 201211
  4. SIMVASTATIN (SIMVASTATIN) [Concomitant]

REACTIONS (12)
  - Palpitations [None]
  - Ventricular extrasystoles [None]
  - Tachyarrhythmia [None]
  - Electrocardiogram QRS complex prolonged [None]
  - Atrioventricular dissociation [None]
  - Polyuria [None]
  - Blood pressure systolic increased [None]
  - Heart rate decreased [None]
  - Drug interaction [None]
  - Heart rate increased [None]
  - Chest discomfort [None]
  - Electrocardiogram P wave abnormal [None]
